FAERS Safety Report 21062702 (Version 3)
Quarter: 2022Q3

REPORT INFORMATION
  Report Type: Report from Study
  Country: JP (occurrence: JP)
  Receive Date: 20220711
  Receipt Date: 20220808
  Transmission Date: 20221027
  Serious: Yes (Hospitalization)
  Sender: FDA-Public Use
  Company Number: JP-ONO-2022JP018673

PATIENT
  Age: 63 Year
  Sex: Male
  Weight: 84.8 kg

DRUGS (60)
  1. ETELCALCETIDE [Suspect]
     Active Substance: ETELCALCETIDE
     Indication: Hyperparathyroidism secondary
     Dosage: 5 MILLIGRAM, 3 TIMES/WK
     Route: 010
     Dates: start: 20211122, end: 20220330
  2. ALFACALCIDOL [Concomitant]
     Active Substance: ALFACALCIDOL
     Dosage: 1 MICROGRAM, QD
     Route: 048
     Dates: start: 20181031, end: 20190108
  3. ALFACALCIDOL [Concomitant]
     Active Substance: ALFACALCIDOL
     Dosage: 0.5 MICROGRAM, QD
     Route: 048
     Dates: start: 20190109, end: 20220215
  4. ALFACALCIDOL [Concomitant]
     Active Substance: ALFACALCIDOL
     Dosage: 1 MILLIGRAM, QD
     Route: 048
     Dates: start: 20220216
  5. EVOCALCET [Concomitant]
     Active Substance: EVOCALCET
     Dosage: 1 MILLIGRAM, QD
     Route: 048
     Dates: start: 20181226, end: 20190423
  6. EVOCALCET [Concomitant]
     Active Substance: EVOCALCET
     Dosage: 2 MILLIGRAM, QD
     Route: 048
     Dates: start: 20190424, end: 20191029
  7. EVOCALCET [Concomitant]
     Active Substance: EVOCALCET
     Dosage: 1 MILLIGRAM, QD
     Route: 048
     Dates: start: 20191030, end: 20200218
  8. EVOCALCET [Concomitant]
     Active Substance: EVOCALCET
     Dosage: 2 MILLIGRAM, QD
     Route: 048
     Dates: start: 20200219, end: 20200326
  9. EVOCALCET [Concomitant]
     Active Substance: EVOCALCET
     Dosage: 3 MILLIGRAM, QD
     Route: 048
     Dates: start: 20200327
  10. CALCIUM CARBONATE [Concomitant]
     Active Substance: CALCIUM CARBONATE
     Dosage: 1500 MILLIGRAM, QD
     Route: 048
     Dates: end: 20191029
  11. CALCIUM CARBONATE [Concomitant]
     Active Substance: CALCIUM CARBONATE
     Dosage: 1500 MILLIGRAM, QD
     Route: 048
     Dates: start: 20191030, end: 20210913
  12. CALCIUM CARBONATE [Concomitant]
     Active Substance: CALCIUM CARBONATE
     Dosage: 1000 MILLIGRAM, QD
     Route: 048
     Dates: start: 20220216, end: 20220301
  13. CALCIUM CARBONATE [Concomitant]
     Active Substance: CALCIUM CARBONATE
     Dosage: 1500 MILLIGRAM, QD
     Route: 048
     Dates: start: 20220302, end: 20220527
  14. ERYTHROPOIETIN [Concomitant]
     Active Substance: ERYTHROPOIETIN
     Dosage: 6000 INTERNATIONAL UNIT, QWK
     Route: 065
     Dates: end: 20190121
  15. ERYTHROPOIETIN [Concomitant]
     Active Substance: ERYTHROPOIETIN
     Dosage: 9000 INTERNATIONAL UNIT, QWK
     Route: 065
     Dates: start: 20190123, end: 20190513
  16. ERYTHROPOIETIN [Concomitant]
     Active Substance: ERYTHROPOIETIN
     Dosage: 6000 INTERNATIONAL UNIT, QWK
     Route: 065
     Dates: start: 20190515, end: 20190722
  17. ERYTHROPOIETIN [Concomitant]
     Active Substance: ERYTHROPOIETIN
     Dosage: 7500 INTERNATIONAL UNIT, QWK
     Route: 065
     Dates: start: 20190724, end: 20190819
  18. ERYTHROPOIETIN [Concomitant]
     Active Substance: ERYTHROPOIETIN
     Dosage: 9000 INTERNATIONAL UNIT, QWK
     Route: 065
     Dates: start: 20190821, end: 20200309
  19. ERYTHROPOIETIN [Concomitant]
     Active Substance: ERYTHROPOIETIN
     Dosage: 6000 INTERNATIONAL UNIT, QWK
     Route: 065
     Dates: start: 20200311, end: 20200422
  20. ERYTHROPOIETIN [Concomitant]
     Active Substance: ERYTHROPOIETIN
     Dosage: 9000 INTERNATIONAL UNIT, QWK
     Route: 065
     Dates: start: 20200424, end: 20201028
  21. ERYTHROPOIETIN [Concomitant]
     Active Substance: ERYTHROPOIETIN
     Dosage: 6000 INTERNATIONAL UNIT, QWK
     Route: 065
     Dates: start: 20201030, end: 20201111
  22. ERYTHROPOIETIN [Concomitant]
     Active Substance: ERYTHROPOIETIN
     Dosage: 4500 INTERNATIONAL UNIT, QWK
     Route: 065
     Dates: start: 20201113, end: 20210106
  23. ERYTHROPOIETIN [Concomitant]
     Active Substance: ERYTHROPOIETIN
     Dosage: 9000 INTERNATIONAL UNIT, QWK
     Route: 065
     Dates: start: 20210108, end: 20210510
  24. ERYTHROPOIETIN [Concomitant]
     Active Substance: ERYTHROPOIETIN
     Dosage: 4500 INTERNATIONAL UNIT, QWK
     Route: 065
     Dates: start: 20210512, end: 20210524
  25. ERYTHROPOIETIN [Concomitant]
     Active Substance: ERYTHROPOIETIN
     Dosage: 3000 INTERNATIONAL UNIT, QWK
     Route: 065
     Dates: start: 20210526, end: 20210607
  26. ERYTHROPOIETIN [Concomitant]
     Active Substance: ERYTHROPOIETIN
     Dosage: 4500 INTERNATIONAL UNIT, QWK
     Route: 065
     Dates: start: 20210609, end: 20210712
  27. ERYTHROPOIETIN [Concomitant]
     Active Substance: ERYTHROPOIETIN
     Dosage: 7500 INTERNATIONAL UNIT, QWK
     Route: 065
     Dates: start: 20210714, end: 20210726
  28. ERYTHROPOIETIN [Concomitant]
     Active Substance: ERYTHROPOIETIN
     Dosage: 9000 INTERNATIONAL UNIT, QWK
     Route: 065
     Dates: start: 20210728
  29. Fesin [Concomitant]
     Dosage: 80 MILLIGRAM, QWK
     Route: 042
     Dates: start: 20190215, end: 20190225
  30. Fesin [Concomitant]
     Dosage: 80 MILLIGRAM, QWK
     Route: 042
     Dates: start: 20190315, end: 20190401
  31. Fesin [Concomitant]
     Dosage: 80 MILLIGRAM, QWK
     Route: 042
     Dates: start: 20190412, end: 20190422
  32. Fesin [Concomitant]
     Dosage: 80 MILLIGRAM, QWK
     Route: 042
     Dates: start: 20190517, end: 20190527
  33. Fesin [Concomitant]
     Dosage: 80 MILLIGRAM, QWK
     Route: 042
     Dates: start: 20190712, end: 20190722
  34. Fesin [Concomitant]
     Dosage: 80 MILLIGRAM, QWK
     Route: 042
     Dates: start: 20190809, end: 20190819
  35. Fesin [Concomitant]
     Dosage: 80 MILLIGRAM, QWK
     Route: 042
     Dates: start: 20190913, end: 20190923
  36. Fesin [Concomitant]
     Dosage: 80 MILLIGRAM, QWK
     Route: 042
     Dates: start: 20191115, end: 20191125
  37. Fesin [Concomitant]
     Dosage: 80 MILLIGRAM, QWK
     Route: 042
     Dates: start: 20200110, end: 20200120
  38. Fesin [Concomitant]
     Dosage: 80 MILLIGRAM, QWK
     Route: 042
     Dates: start: 20200411, end: 20200421
  39. Fesin [Concomitant]
     Dosage: 80 MILLIGRAM, QWK
     Route: 042
     Dates: start: 20200515, end: 20200525
  40. Fesin [Concomitant]
     Dosage: 80 MILLIGRAM, QWK
     Route: 042
     Dates: start: 20200612, end: 20200622
  41. Fesin [Concomitant]
     Dosage: 80 MILLIGRAM, QWK
     Route: 042
     Dates: start: 20200710, end: 20200720
  42. Fesin [Concomitant]
     Dosage: 80 MILLIGRAM, QWK
     Route: 042
     Dates: start: 20200828, end: 20200907
  43. Fesin [Concomitant]
     Dosage: 80 MILLIGRAM, QWK
     Route: 042
     Dates: start: 20200918, end: 20200928
  44. Fesin [Concomitant]
     Dosage: 80 MILLIGRAM, QWK
     Route: 042
     Dates: start: 20201016, end: 20201026
  45. Fesin [Concomitant]
     Dosage: 80 MILLIGRAM, QWK
     Route: 042
     Dates: start: 20210115, end: 20210125
  46. Fesin [Concomitant]
     Dosage: 80 MILLIGRAM, QWK
     Route: 042
     Dates: start: 20210205, end: 20210215
  47. Fesin [Concomitant]
     Dosage: 80 MILLIGRAM, QWK
     Route: 042
     Dates: start: 20210313, end: 20210323
  48. Fesin [Concomitant]
     Dosage: 80 MILLIGRAM, QWK
     Route: 042
     Dates: start: 20210716, end: 20210726
  49. Fesin [Concomitant]
     Dosage: 80 MILLIGRAM, QWK
     Route: 042
     Dates: start: 20210730, end: 20210809
  50. Fesin [Concomitant]
     Dosage: 80 MILLIGRAM, QWK
     Route: 042
     Dates: start: 20210910, end: 20210927
  51. Fesin [Concomitant]
     Dosage: 80 MILLIGRAM, QWK
     Route: 042
     Dates: start: 20211015, end: 20211129
  52. Fesin [Concomitant]
     Dosage: 80 MILLIGRAM, QWK
     Route: 042
     Dates: start: 20220211, end: 20220221
  53. Fesin [Concomitant]
     Dosage: 80 MILLIGRAM, QWK
     Route: 042
     Dates: start: 20220325, end: 20220425
  54. Fesin [Concomitant]
     Dosage: 80 MILLIGRAM, QWK
     Route: 042
     Dates: start: 20220527, end: 20220620
  55. FOSRENOL [Concomitant]
     Active Substance: LANTHANUM CARBONATE
     Dosage: 750 MILLIGRAM, QD
     Route: 048
     Dates: start: 20210217, end: 20210323
  56. FOSRENOL [Concomitant]
     Active Substance: LANTHANUM CARBONATE
     Dosage: 1500 MILLIGRAM, QD
     Route: 048
     Dates: start: 20210324, end: 20210427
  57. FOSRENOL [Concomitant]
     Active Substance: LANTHANUM CARBONATE
     Dosage: 2250 MILLIGRAM, QD
     Route: 048
     Dates: start: 20210428, end: 20210913
  58. FOSRENOL [Concomitant]
     Active Substance: LANTHANUM CARBONATE
     Dosage: 750 MILLIGRAM, QD
     Route: 048
     Dates: start: 20211013, end: 20211026
  59. FOSRENOL [Concomitant]
     Active Substance: LANTHANUM CARBONATE
     Dosage: 1500 MILLIGRAM, QD
     Route: 048
     Dates: start: 20211027, end: 20211109
  60. FOSRENOL [Concomitant]
     Active Substance: LANTHANUM CARBONATE
     Dosage: 2250 MILLIGRAM, QD
     Route: 048
     Dates: start: 20211110

REACTIONS (2)
  - Incisional hernia [Recovered/Resolved]
  - Shunt stenosis [Recovered/Resolved]

NARRATIVE: CASE EVENT DATE: 20220308
